FAERS Safety Report 8062782-X (Version None)
Quarter: 2012Q1

REPORT INFORMATION
  Report Type: 
  Country: None (occurrence: None)
  Receive Date: 20120123
  Receipt Date: 20120110
  Transmission Date: 20120608
  Serious: Yes (Other)
  Sender: FDA-Public Use
  Company Number: US-ELI_LILLY_AND_COMPANY-US201201004317

PATIENT
  Age: 25 Year
  Sex: Male

DRUGS (2)
  1. ZYPREXA [Suspect]
     Dosage: 2.5 MG, UNK
     Dates: start: 20100101, end: 20111222
  2. PAXIL [Concomitant]
     Indication: MAJOR DEPRESSION
     Dosage: 20 MG, UNK
     Dates: start: 20080101, end: 20111222

REACTIONS (2)
  - PRIAPISM [None]
  - HAEMORRHAGE INTRACRANIAL [None]
